FAERS Safety Report 24806166 (Version 3)
Quarter: 2025Q2

REPORT INFORMATION
  Report Type: Spontaneous
  Country: US (occurrence: US)
  Receive Date: 20250103
  Receipt Date: 20250617
  Transmission Date: 20250716
  Serious: No
  Sender: ITALFARMACO SPA
  Company Number: US-ITALFARMACO SPA-2168353

PATIENT
  Age: 10 Year
  Sex: Male
  Weight: 32.07 kg

DRUGS (4)
  1. DUVYZAT [Suspect]
     Active Substance: GIVINOSTAT
     Indication: Duchenne muscular dystrophy
     Dates: start: 20241126
  2. PREDNISONE [Concomitant]
     Active Substance: PREDNISONE
  3. VITAMIN D [Concomitant]
     Active Substance: VITAMIN D NOS
  4. LISINOPRIL [Concomitant]
     Active Substance: LISINOPRIL

REACTIONS (4)
  - Abdominal discomfort [Unknown]
  - Off label use [Unknown]
  - Laboratory test abnormal [Unknown]
  - Platelet count decreased [Not Recovered/Not Resolved]
